FAERS Safety Report 6440480-3 (Version None)
Quarter: 2009Q4

REPORT INFORMATION
  Report Type: 
  Country: None (occurrence: None)
  Receive Date: 20091113
  Receipt Date: 20091102
  Transmission Date: 20100525
  Serious: Yes (Hospitalization)
  Sender: FDA-Public Use
  Company Number: US-ELI_LILLY_AND_COMPANY-US200911000307

PATIENT
  Sex: Female

DRUGS (6)
  1. CYMBALTA [Suspect]
     Indication: DEPRESSION
     Dosage: 30 MG, DAILY (1/D)
     Dates: start: 20080801, end: 20091031
  2. CYMBALTA [Suspect]
     Dosage: 20 MG, DAILY (1/D)
     Dates: start: 20091101, end: 20091102
  3. PLAVIX [Concomitant]
     Dosage: 1 D/F, UNK
     Dates: start: 20091001, end: 20091026
  4. XANAX [Concomitant]
  5. ASPIRIN [Concomitant]
  6. EFFIENT [Concomitant]
     Dosage: 10 MG, UNK
     Dates: start: 20091001

REACTIONS (14)
  - BLOOD PRESSURE INCREASED [None]
  - CATHETERISATION CARDIAC [None]
  - CHEST PAIN [None]
  - DECREASED ACTIVITY [None]
  - DYSPNOEA [None]
  - EPISTAXIS [None]
  - HAEMORRHAGE [None]
  - INTENTIONAL DRUG MISUSE [None]
  - MALAISE [None]
  - MUSCLE SPASMS [None]
  - PETECHIAE [None]
  - PRURITUS [None]
  - SOMNOLENCE [None]
  - STENT PLACEMENT [None]
